FAERS Safety Report 19432610 (Version 1)
Quarter: 2021Q2

REPORT INFORMATION
  Report Type: Other
  Country: US (occurrence: US)
  Receive Date: 20210617
  Receipt Date: 20210617
  Transmission Date: 20210717
  Serious: Yes (Hospitalization, Other)
  Sender: FDA-Public Use
  Company Number: US-DEXPHARM-20210761

PATIENT
  Age: 69 Year
  Sex: Female

DRUGS (4)
  1. ATEZOLIZUMAB. [Suspect]
     Active Substance: ATEZOLIZUMAB
  2. OMEPRAZOLE. [Interacting]
     Active Substance: OMEPRAZOLE
  3. CIPROFLOXACIN. [Interacting]
     Active Substance: CIPROFLOXACIN
  4. NAB?PACLITAXEL [Concomitant]
     Active Substance: PACLITAXEL

REACTIONS (1)
  - Drug interaction [Unknown]
